FAERS Safety Report 5935137-9 (Version None)
Quarter: 2008Q4

REPORT INFORMATION
  Report Type: 
  Country: None (occurrence: None)
  Receive Date: 20081030
  Receipt Date: 20081020
  Transmission Date: 20090506
  Serious: Yes (Other)
  Sender: FDA-Public Use
  Company Number: US-JNJFOC-20081005248

PATIENT
  Sex: Female
  Weight: 49.9 kg

DRUGS (1)
  1. ORTHO TRI-CYCLEN LO [Suspect]
     Indication: CONTRACEPTION
     Route: 048

REACTIONS (5)
  - DIZZINESS [None]
  - DYSPNOEA [None]
  - FEELING HOT [None]
  - HAEMORRHAGE [None]
  - LOSS OF CONSCIOUSNESS [None]
